FAERS Safety Report 7553081-0 (Version None)
Quarter: 2011Q2

REPORT INFORMATION
  Report Type: 
  Country: None (occurrence: None)
  Receive Date: 20110616
  Receipt Date: 20110606
  Transmission Date: 20111010
  Serious: Yes (Other)
  Sender: FDA-Public Use
  Company Number: GB-UCBSA-033633

PATIENT
  Sex: Male

DRUGS (7)
  1. MOVIPREP [Concomitant]
     Indication: CONSTIPATION
     Dosage: SACHET
     Route: 048
     Dates: start: 20110510
  2. NEUPRO [Suspect]
     Indication: PARKINSON'S DISEASE
     Dosage: START: APPROXIMATELY 2 YEARS; 4MG PATCHES
     Dates: start: 20090101, end: 20110524
  3. ISOTARD XL [Concomitant]
     Indication: ANGINA PECTORIS
     Route: 048
     Dates: start: 20110510
  4. NEUPRO [Suspect]
     Dates: start: 20110101
  5. TEMAZEPAM [Concomitant]
     Indication: INSOMNIA
     Route: 048
  6. CO-BENELDOPA [Concomitant]
     Indication: PARKINSON'S DISEASE
     Route: 048
     Dates: start: 20110510
  7. MIRTAZAPINE [Concomitant]
     Indication: DEPRESSION
     Route: 048

REACTIONS (1)
  - APPLICATION SITE RASH [None]
